FAERS Safety Report 12991363 (Version 1)
Quarter: 2016Q4

REPORT INFORMATION
  Report Type: Spontaneous
  Country: US (occurrence: US)
  Receive Date: 20161201
  Receipt Date: 20161201
  Transmission Date: 20170207
  Serious: Yes (Hospitalization)
  Sender: FDA-Public Use
  Company Number: US-RELYPSA-RLY2016004055

PATIENT
  Age: 66 Year
  Sex: Male

DRUGS (11)
  1. TYLENOL EXTRA STRENGTH [Concomitant]
     Active Substance: ACETAMINOPHEN
  2. NOVOLOG [Concomitant]
     Active Substance: INSULIN ASPART
  3. CYTRA-2 [Concomitant]
     Active Substance: CITRIC ACID MONOHYDRATE\TRISODIUM CITRATE DIHYDRATE
  4. LISINOPRIL. [Concomitant]
     Active Substance: LISINOPRIL
  5. JANTOVEN [Concomitant]
     Active Substance: WARFARIN SODIUM
  6. CRESTOR [Concomitant]
     Active Substance: ROSUVASTATIN CALCIUM
  7. DILTIAZEM CD [Concomitant]
     Active Substance: DILTIAZEM
  8. HYDROCHLOROTHIAZIDE. [Concomitant]
     Active Substance: HYDROCHLOROTHIAZIDE
  9. VELTASSA [Suspect]
     Active Substance: PATIROMER
     Indication: HYPERKALAEMIA
     Dosage: 8.4 G, QD
     Route: 048
     Dates: start: 2016, end: 2016
  10. LANTUS [Concomitant]
     Active Substance: INSULIN GLARGINE
  11. SAW PALMETTO                       /00833501/ [Concomitant]
     Active Substance: SAW PALMETTO

REACTIONS (1)
  - Renal disorder [Unknown]

NARRATIVE: CASE EVENT DATE: 20161003
